FAERS Safety Report 22639465 (Version 1)
Quarter: 2023Q2

REPORT INFORMATION
  Report Type: Spontaneous
  Country: GB (occurrence: GB)
  Receive Date: 20230626
  Receipt Date: 20230626
  Transmission Date: 20230722
  Serious: Yes (Other)
  Sender: FDA-Public Use
  Company Number: GB-MHRA-MED-202306221430136910-HMZYN

PATIENT
  Age: 17 Year
  Sex: Male
  Weight: 63 kg

DRUGS (2)
  1. RISPERIDONE [Suspect]
     Active Substance: RISPERIDONE
     Indication: Psychotic disorder
     Dosage: 1.5 MG (LOW DOSE)
     Route: 065
     Dates: start: 20230506
  2. RISPERIDONE [Suspect]
     Active Substance: RISPERIDONE
     Dosage: DOSE INCREASED
     Route: 065
     Dates: end: 20230614

REACTIONS (1)
  - Epistaxis [Not Recovered/Not Resolved]

NARRATIVE: CASE EVENT DATE: 20230523
